FAERS Safety Report 7602357-7 (Version None)
Quarter: 2011Q3

REPORT INFORMATION
  Report Type: 
  Country: None (occurrence: None)
  Receive Date: 20110712
  Receipt Date: 20110705
  Transmission Date: 20111222
  Serious: Yes (Hospitalization)
  Sender: FDA-Public Use
  Company Number: AR-BRISTOL-MYERS SQUIBB COMPANY-15889793

PATIENT
  Age: 43 Year
  Sex: Male

DRUGS (2)
  1. ARIPIPRAZOLE [Suspect]
     Indication: SCHIZOPHRENIA
     Dosage: WITHDRAWN FROM THE STUDY
     Route: 030
     Dates: start: 20110126, end: 20110615
  2. LORAZEPAM [Concomitant]
     Dates: start: 20110406

REACTIONS (1)
  - PSYCHOTIC DISORDER [None]
